FAERS Safety Report 4515514-3 (Version None)
Quarter: 2004Q4

REPORT INFORMATION
  Report Type: 
  Country: None (occurrence: None)
  Receive Date: 20041126
  Receipt Date: 20041109
  Transmission Date: 20050328
  Serious: Yes (Hospitalization)
  Sender: FDA-Public Use
  Company Number: 207552

PATIENT
  Age: 58 Year
  Sex: Female
  Weight: 66.6788 kg

DRUGS (10)
  1. AVONEX [Suspect]
     Indication: MULTIPLE SCLEROSIS
     Dosage: 30 MG; QW; IM
     Route: 030
     Dates: end: 20030801
  2. AVONEX [Suspect]
     Indication: MULTIPLE SCLEROSIS
     Dosage: 30 MG; QW; IM
     Route: 030
     Dates: start: 19970101
  3. AVONEX [Suspect]
     Indication: MULTIPLE SCLEROSIS
     Dosage: 30 MG; QW; IM
     Route: 030
     Dates: start: 20030801
  4. BACLOFEN [Concomitant]
  5. MIDRIN [Concomitant]
  6. ESTRACE [Concomitant]
  7. INDERAL LA [Concomitant]
  8. METROLOTION [Concomitant]
  9. TRIAMTERNE/HCTZ [Concomitant]
  10. TRIAMTERENE AND HYDROCHLOROTHIAZIDE [Concomitant]

REACTIONS (13)
  - BACK PAIN [None]
  - BLOOD POTASSIUM DECREASED [None]
  - CONDITION AGGRAVATED [None]
  - CONTUSION [None]
  - DEEP VEIN THROMBOSIS [None]
  - DIABETES MELLITUS NON-INSULIN-DEPENDENT [None]
  - FALL [None]
  - FOLLICULITIS [None]
  - HEAD INJURY [None]
  - IRRITABLE BOWEL SYNDROME [None]
  - MULTIPLE SCLEROSIS [None]
  - URINARY INCONTINENCE [None]
  - URINARY TRACT INFECTION [None]
